FAERS Safety Report 8837859 (Version 2)
Quarter: 2015Q3

REPORT INFORMATION
  Report Type: Report from Study
  Country: US (occurrence: US)
  Receive Date: 20121012
  Receipt Date: 20150824
  Transmission Date: 20151125
  Serious: Yes (Other)
  Sender: FDA-Public Use
  Company Number: US-ROCHE-1140516

PATIENT
  Sex: Female
  Weight: 54.7 kg

DRUGS (14)
  1. CORTEF [Concomitant]
     Active Substance: HYDROCORTISONE
     Route: 065
  2. CORTEF [Concomitant]
     Active Substance: HYDROCORTISONE
     Route: 048
  3. CORTEF [Concomitant]
     Active Substance: HYDROCORTISONE
     Dosage: 1 IN THE MORNING AND 1/2 IN THE EVENING
     Route: 048
  4. SYNTHROID [Concomitant]
     Active Substance: LEVOTHYROXINE SODIUM
     Route: 065
  5. PROTROPIN [Suspect]
     Active Substance: SOMATREM
     Indication: HYPOPITUITARISM
     Route: 058
  6. PROTROPIN [Suspect]
     Active Substance: SOMATREM
     Route: 058
  7. PROTROPIN [Suspect]
     Active Substance: SOMATREM
     Route: 058
  8. PROTROPIN [Suspect]
     Active Substance: SOMATREM
     Route: 058
  9. LUPRON [Concomitant]
     Active Substance: LEUPROLIDE ACETATE
     Route: 030
  10. PROTROPIN [Suspect]
     Active Substance: SOMATREM
     Indication: DWARFISM
     Route: 058
  11. PROTROPIN [Suspect]
     Active Substance: SOMATREM
     Route: 058
  12. SYNTHROID [Concomitant]
     Active Substance: LEVOTHYROXINE SODIUM
     Route: 065
  13. PROTROPIN [Suspect]
     Active Substance: SOMATREM
     Indication: HYPOPITUITARISM
     Route: 058
  14. CORTEF [Concomitant]
     Active Substance: HYDROCORTISONE
     Dosage: 1/2 TABLET BID
     Route: 048

REACTIONS (15)
  - Pharyngitis streptococcal [Unknown]
  - Pneumonia [Unknown]
  - Menstruation irregular [Unknown]
  - Pyrexia [Unknown]
  - Weight increased [Unknown]
  - Sinusitis [Unknown]
  - Growth retardation [Unknown]
  - Pharyngeal erythema [Unknown]
  - Upper-airway cough syndrome [Unknown]
  - Asthenia [Unknown]
  - Alopecia [Unknown]
  - Fatigue [Unknown]
  - Nasopharyngitis [Unknown]
  - Ear infection [Unknown]
  - Upper respiratory tract infection [Unknown]
